FAERS Safety Report 4845261-X (Version None)
Quarter: 2005Q4

REPORT INFORMATION
  Report Type: 
  Country: None (occurrence: None)
  Receive Date: 20051128
  Receipt Date: 20051118
  Transmission Date: 20060501
  Serious: Yes (Hospitalization)
  Sender: FDA-Public Use
  Company Number: 2005-11-1060

PATIENT
  Age: 50 Year
  Sex: Male
  Weight: 90.7194 kg

DRUGS (13)
  1. PEG-INTRON [Suspect]
     Indication: HEPATITIS C
     Dosage: 150 MCG QWK SUBCUTANEOUS
     Route: 058
     Dates: start: 20050926
  2. REBETOL [Suspect]
     Indication: HEPATITIS C
     Dosage: 1200 MG QD ORAL
     Route: 048
     Dates: start: 20050926
  3. ACTOS [Concomitant]
  4. AMITRIPTYLINE HCL [Concomitant]
  5. ASPIRIN [Concomitant]
  6. ATENOLOL [Concomitant]
  7. GEMFIBROZIL [Concomitant]
  8. GLUCOPHAGE [Concomitant]
  9. METFORMIN HCL [Concomitant]
  10. MILK THRISTLE FRUIT CAPSULES [Concomitant]
  11. OXYCONTIN (OXYCODONE HCL) TABLETS [Concomitant]
  12. QUINAPRIL HYDROCHLORIDE TABLETS [Concomitant]
  13. IBUPROFEN [Concomitant]

REACTIONS (3)
  - DIARRHOEA [None]
  - HEPATIC ENCEPHALOPATHY [None]
  - WHITE BLOOD CELL COUNT DECREASED [None]
